FAERS Safety Report 13064382 (Version 1)
Quarter: 2016Q4

REPORT INFORMATION
  Report Type: Spontaneous
  Country: US (occurrence: US)
  Receive Date: 20161223
  Receipt Date: 20161223
  Transmission Date: 20170207
  Serious: No
  Sender: FDA-Public Use
  Company Number: None

PATIENT
  Age: 44 Year
  Sex: Female

DRUGS (1)
  1. IBRANCE [Suspect]
     Active Substance: PALBOCICLIB
     Indication: METASTASES TO BONE
     Dosage: 125MG 21DAY ON, 7DAYS OFF ORAL
     Route: 048
     Dates: start: 20160122

REACTIONS (4)
  - Amnesia [None]
  - Asthenia [None]
  - Fatigue [None]
  - Depressed mood [None]

NARRATIVE: CASE EVENT DATE: 20160601
